FAERS Safety Report 5625077-7 (Version None)
Quarter: 2008Q1

REPORT INFORMATION
  Report Type: 
  Country: None (occurrence: None)
  Receive Date: 20080213
  Receipt Date: 20080201
  Transmission Date: 20080703
  Serious: Yes (Other)
  Sender: FDA-Public Use
  Company Number: AT-PFIZER INC-2008011191

PATIENT
  Age: 71 Year
  Sex: Female

DRUGS (11)
  1. TRESLEEN [Suspect]
     Route: 048
  2. HALDOL [Suspect]
     Dosage: DAILY DOSE:1.5MG
     Route: 042
  3. ARICEPT [Suspect]
     Indication: DEMENTIA ALZHEIMER'S TYPE
     Route: 048
     Dates: start: 20071205
  4. SEROQUEL [Suspect]
     Dosage: DAILY DOSE:200MEQ
  5. MIRTAZAPINE [Concomitant]
     Route: 048
     Dates: start: 20070701, end: 20071212
  6. XANOR [Concomitant]
     Route: 048
  7. NEXIUM [Concomitant]
     Route: 048
  8. LEVOLAC [Concomitant]
     Route: 048
  9. GASTROZEPIN [Concomitant]
     Route: 048
     Dates: start: 20070701, end: 20071223
  10. ALL OTHER THERAPEUTIC PRODUCTS [Concomitant]
  11. GENTAMICIN [Concomitant]
     Route: 061
     Dates: start: 20071218, end: 20071231

REACTIONS (1)
  - PLEUROTHOTONUS [None]
